FAERS Safety Report 5469202-X (Version None)
Quarter: 2007Q3

REPORT INFORMATION
  Report Type: 
  Country: None (occurrence: None)
  Receive Date: 20070927
  Receipt Date: 20070918
  Transmission Date: 20080115
  Serious: Yes (Other)
  Sender: FDA-Public Use
  Company Number: ZA-JNJFOC-20070903502

PATIENT
  Sex: Male

DRUGS (4)
  1. DURAGESIC-100 [Suspect]
     Indication: NEURALGIA
     Route: 062
  2. DURAGESIC-100 [Suspect]
     Indication: SPINAL COLUMN STENOSIS
     Route: 062
  3. NONSTEROIDAL ANTIINFLAMMATORIES [Concomitant]
     Route: 065
  4. ANALGESIC [Concomitant]
     Route: 065

REACTIONS (4)
  - ABDOMINAL DISTENSION [None]
  - EYE SWELLING [None]
  - FACE OEDEMA [None]
  - HALLUCINATION [None]
